FAERS Safety Report 15865593 (Version 1)
Quarter: 2019Q1

REPORT INFORMATION
  Report Type: Report from Study
  Country: US (occurrence: US)
  Receive Date: 20190125
  Receipt Date: 20190125
  Transmission Date: 20190417
  Serious: Yes (Death)
  Sender: FDA-Public Use
  Company Number: US-ROCHE-2222379

PATIENT
  Age: 50 Year
  Sex: Female
  Weight: 147.55 kg

DRUGS (1)
  1. RITUXAN [Suspect]
     Active Substance: RITUXIMAB
     Indication: SJOGREN^S SYNDROME
     Dosage: ONGOING:YES,X2,Q6 M
     Route: 042
     Dates: start: 20181024

REACTIONS (6)
  - Weight increased [Unknown]
  - Off label use [Unknown]
  - Death [Fatal]
  - Drug intolerance [Unknown]
  - Chills [Unknown]
  - Intentional product use issue [Unknown]

NARRATIVE: CASE EVENT DATE: 20181103
